FAERS Safety Report 22224611 (Version 1)
Quarter: 2023Q2

REPORT INFORMATION
  Report Type: Spontaneous
  Country: CN (occurrence: CN)
  Receive Date: 20230418
  Receipt Date: 20230418
  Transmission Date: 20230722
  Serious: Yes (Hospitalization, Other)
  Sender: FDA-Public Use
  Company Number: CN-ELI_LILLY_AND_COMPANY-CN202304005905

PATIENT
  Age: 28 Year
  Sex: Male
  Weight: 62 kg

DRUGS (3)
  1. ZYPREXA [Suspect]
     Active Substance: OLANZAPINE
     Indication: Affective disorder
     Dosage: 10 MG, DAILY
     Route: 048
     Dates: start: 20230325, end: 20230410
  2. ZYPREXA [Suspect]
     Active Substance: OLANZAPINE
     Dosage: 5 MG, DAILY
     Route: 048
  3. DIAZEPAM [Concomitant]
     Active Substance: DIAZEPAM
     Indication: Drug dependence
     Dosage: 6 DOSAGE FORM, DAILY (1 TIME DAILY)
     Route: 048
     Dates: start: 20220301, end: 20220325

REACTIONS (2)
  - Extrapyramidal disorder [Recovered/Resolved]
  - Drug dependence [Recovered/Resolved]

NARRATIVE: CASE EVENT DATE: 20230325
